FAERS Safety Report 8901643 (Version 1)
Quarter: 2012Q4

REPORT INFORMATION
  Report Type: Spontaneous
  Country: US (occurrence: None)
  Receive Date: 20121031
  Receipt Date: 20121031
  Transmission Date: 20130627
  Serious: Yes (Hospitalization)
  Sender: FDA-Public Use
  Company Number: 1468915

PATIENT
  Age: 78 Year
  Sex: Female

DRUGS (4)
  1. METHOTREXATE [Suspect]
     Indication: ULCERATIVE COLITIS
  2. METHOTREXATE [Suspect]
     Indication: UNSPECIFIED INFLAMMATORY POLYARTHROPATHY
  3. INFLIXIMAB [Suspect]
     Indication: ULCERATIVE COLITIS
  4. INFLIXIMAB [Suspect]
     Indication: UNSPECIFIED INFLAMMATORY POLYARTHROPATHY

REACTIONS (5)
  - Diarrhoea [None]
  - Abdominal pain [None]
  - Pyrexia [None]
  - Listeriosis [None]
  - Gastrointestinal oedema [None]
